FAERS Safety Report 5216720-5 (Version None)
Quarter: 2007Q1

REPORT INFORMATION
  Report Type: 
  Country: None (occurrence: None)
  Receive Date: 20061130
  Receipt Date: 20060530
  Transmission Date: 20070707
  Serious: Yes (Hospitalization)
  Sender: FDA-Public Use
  Company Number: US200603000333

PATIENT
  Age: 43 Year
  Sex: Male
  Weight: 97.5 kg

DRUGS (11)
  1. ZYPREXA [Suspect]
     Indication: ANXIETY DISORDER
     Dosage: SEE IMAGE
     Dates: start: 20000929, end: 20010401
  2. ZYPREXA [Suspect]
     Indication: ANXIETY DISORDER
     Dosage: SEE IMAGE
     Dates: start: 20010401, end: 20040901
  3. ZYPREXA [Suspect]
     Indication: ANXIETY DISORDER
     Dosage: SEE IMAGE
     Dates: start: 20030601, end: 20040901
  4. ZYPREXA [Suspect]
     Indication: ANXIETY DISORDER
     Dosage: SEE IMAGE
     Dates: start: 20041001, end: 20041101
  5. ZYPREXA [Suspect]
     Indication: ANXIETY DISORDER
     Dosage: SEE IMAGE
     Dates: start: 20030301
  6. ZYPREXA [Suspect]
     Indication: ANXIETY DISORDER
     Dosage: SEE IMAGE
     Dates: start: 20030401
  7. ZYPREXA [Suspect]
     Indication: ANXIETY DISORDER
     Dosage: SEE IMAGE
     Dates: start: 20030501
  8. ZYPREXA [Suspect]
     Indication: ANXIETY DISORDER
     Dosage: SEE IMAGE
     Dates: start: 20030530
  9. ZOLOFT [Concomitant]
  10. RISPERDAL /SWE/ (RISPERIDONE) [Concomitant]
  11. SERZONE [Concomitant]

REACTIONS (3)
  - DIABETES MELLITUS NON-INSULIN-DEPENDENT [None]
  - HYPERTENSION [None]
  - WEIGHT INCREASED [None]
